FAERS Safety Report 4431174-4 (Version None)
Quarter: 2004Q3

REPORT INFORMATION
  Report Type: 
  Country: None (occurrence: None)
  Receive Date: 20040824
  Receipt Date: 20040728
  Transmission Date: 20050211
  Serious: Yes (Life-Threatening, Hospitalization, Other)
  Sender: FDA-Public Use
  Company Number: DE-JNJFOC-20040707812

PATIENT
  Sex: Female

DRUGS (26)
  1. LEVOFLOXACIN [Suspect]
     Indication: PNEUMONIA
     Route: 042
     Dates: start: 20030903, end: 20030905
  2. INSULIN HUMAN REGULAR [Concomitant]
     Route: 058
  3. MYCOSTATIN ZINC [Concomitant]
     Indication: LOCAL ANTIFUNGAL TREATMENT
     Route: 061
  4. ZINC OXIDE [Concomitant]
     Route: 061
  5. VANCOMYCIN [Concomitant]
     Route: 042
     Dates: start: 20030906, end: 20030910
  6. METRONIDAZOLE [Concomitant]
     Route: 042
  7. KCL TAB [Concomitant]
     Route: 042
  8. KCL TAB [Concomitant]
     Route: 042
  9. KCL TAB [Concomitant]
     Route: 049
  10. DOPAMINE HCL [Concomitant]
     Indication: SHOCK
     Route: 042
     Dates: start: 20030903, end: 20030906
  11. FUROSEMIDE [Concomitant]
     Route: 049
     Dates: start: 20030903, end: 20030906
  12. MULTI-VITAMINS [Concomitant]
     Dates: start: 20030903, end: 20030906
  13. MULTI-VITAMINS [Concomitant]
     Dates: start: 20030903, end: 20030906
  14. MULTI-VITAMINS [Concomitant]
     Dates: start: 20030903, end: 20030906
  15. MULTI-VITAMINS [Concomitant]
     Dates: start: 20030903, end: 20030906
  16. MULTI-VITAMINS [Concomitant]
     Dates: start: 20030903, end: 20030906
  17. MULTI-VITAMINS [Concomitant]
     Dates: start: 20030903, end: 20030906
  18. MULTI-VITAMINS [Concomitant]
     Dates: start: 20030903, end: 20030906
  19. MULTI-VITAMINS [Concomitant]
     Dates: start: 20030903, end: 20030906
  20. FERROUS SULFATE TAB [Concomitant]
     Route: 049
  21. FOLIC ACID [Concomitant]
     Route: 049
     Dates: start: 20030903, end: 20030906
  22. SIMVASTATIN [Concomitant]
     Route: 049
  23. ACETAMINOPHEN [Concomitant]
     Route: 049
     Dates: start: 20030903, end: 20030906
  24. HYDROCHLOROTHIAZIDE [Concomitant]
     Dates: start: 20030903, end: 20030906
  25. MAXZIDE [Concomitant]
  26. MAXZIDE [Concomitant]
     Indication: HYPERTENSION

REACTIONS (3)
  - INTESTINAL INFARCTION [None]
  - SEPTIC SHOCK [None]
  - VOLVULUS OF BOWEL [None]
